FAERS Safety Report 10881701 (Version 1)
Quarter: 2015Q1

REPORT INFORMATION
  Report Type: Spontaneous
  Country: None (occurrence: None)
  Receive Date: 20150226
  Receipt Date: 20150226
  Transmission Date: 20150721
  Serious: Yes (Hospitalization)
  Sender: FDA-Public Use
  Company Number: None

PATIENT
  Age: 40 Year
  Sex: Female
  Weight: 62.87 kg

DRUGS (29)
  1. CYMBALTA [Concomitant]
     Active Substance: DULOXETINE HYDROCHLORIDE
  2. MAGNESIUM [Concomitant]
     Active Substance: MAGNESIUM
  3. NYSTATIN. [Concomitant]
     Active Substance: NYSTATIN
  4. SUMATRIPTAN. [Concomitant]
     Active Substance: SUMATRIPTAN
  5. VITAMIN D [Concomitant]
     Active Substance: CHOLECALCIFEROL
  6. VALTREX [Concomitant]
     Active Substance: VALACYCLOVIR HYDROCHLORIDE
  7. CATHETER 14 FR-6 ^ [Concomitant]
  8. EMLA [Concomitant]
     Active Substance: LIDOCAINE\PRILOCAINE
  9. HYDROXYZINE HCL [Concomitant]
     Active Substance: HYDROXYZINE HYDROCHLORIDE
  10. LUNESTA [Concomitant]
     Active Substance: ESZOPICLONE
  11. SINGULAIR [Concomitant]
     Active Substance: MONTELUKAST SODIUM
  12. ALEMTUZUMAB [Suspect]
     Active Substance: ALEMTUZUMAB
     Indication: MULTIPLE SCLEROSIS
     Route: 042
     Dates: start: 20140127, end: 201401
  13. DIAZEPAM. [Concomitant]
     Active Substance: DIAZEPAM
  14. MELATONIN [Concomitant]
     Active Substance: MELATONIN
  15. RIZANIDINE [Concomitant]
  16. ZOFRAN ODT [Concomitant]
     Active Substance: ONDANSETRON HYDROCHLORIDE
  17. ZONISAMIDE. [Concomitant]
     Active Substance: ZONISAMIDE
  18. GABAPENTIN. [Concomitant]
     Active Substance: GABAPENTIN
  19. PROMETHAZINE [Concomitant]
     Active Substance: PROMETHAZINE\PROMETHAZINE HYDROCHLORIDE
  20. VITAMIN B COMPLEX 13-FOLIC ACID-VIT C-BIOTIN [Concomitant]
  21. FLUCONAZOLE. [Concomitant]
     Active Substance: FLUCONAZOLE
  22. LASIX [Concomitant]
     Active Substance: FUROSEMIDE
  23. METOCLOPRAMIDE. [Concomitant]
     Active Substance: METOCLOPRAMIDE
  24. MULTIVITAMIN TABLET [Concomitant]
  25. SOLU-MEDROL [Suspect]
     Active Substance: METHYLPREDNISOLONE SODIUM SUCCINATE
     Route: 042
     Dates: start: 201412, end: 20141211
  26. ALEMTUZUMAB [Concomitant]
     Active Substance: ALEMTUZUMAB
  27. METHYLPHENIDATE [Concomitant]
     Active Substance: METHYLPHENIDATE
  28. OXYCODONE, ACETAMINOPHEN [Concomitant]
  29. BUSPIRONE [Concomitant]
     Active Substance: BUSPIRONE HYDROCHLORIDE

REACTIONS (4)
  - Anxiety [None]
  - Depression [None]
  - Incorrect dose administered [None]
  - Cellulitis [None]

NARRATIVE: CASE EVENT DATE: 20150211
